FAERS Safety Report 24041563 (Version 1)
Quarter: 2024Q3

REPORT INFORMATION
  Report Type: Spontaneous
  Country: FR (occurrence: FR)
  Receive Date: 20240702
  Receipt Date: 20240702
  Transmission Date: 20241017
  Serious: Yes (Congenital Anomaly, Other)
  Sender: VERTEX
  Company Number: None

PATIENT
  Sex: Female

DRUGS (2)
  1. ELEXACAFTOR\IVACAFTOR\TEZACAFTOR [Suspect]
     Active Substance: ELEXACAFTOR\IVACAFTOR\TEZACAFTOR
     Indication: Cystic fibrosis
     Dosage: 2 TABS: 75 MG IVA/ 50 MG TEZA/ 100 MG ELEXA, QD
     Route: 048
     Dates: end: 20240306
  2. KALYDECO [Suspect]
     Active Substance: IVACAFTOR
     Indication: Cystic fibrosis
     Dosage: 150 MILLIGRAM, QD
     Route: 048
     Dates: end: 20240306

REACTIONS (5)
  - Hyperaesthesia [Not Recovered/Not Resolved]
  - Failure to thrive [Not Recovered/Not Resolved]
  - Poor feeding infant [Not Recovered/Not Resolved]
  - Hypotonia [Not Recovered/Not Resolved]
  - Foetal exposure during pregnancy [Unknown]

NARRATIVE: CASE EVENT DATE: 20230101
